FAERS Safety Report 4971475-4 (Version None)
Quarter: 2006Q2

REPORT INFORMATION
  Report Type: 
  Country: None (occurrence: None)
  Receive Date: 20060413
  Receipt Date: 20060404
  Transmission Date: 20061013
  Serious: Yes (Other)
  Sender: FDA-Public Use
  Company Number: PHRM2006FR01261

PATIENT
  Sex: Female

DRUGS (2)
  1. TEGRETOL [Suspect]
  2. LIORESAL [Suspect]

REACTIONS (3)
  - ABORTION INDUCED [None]
  - DRUG EXPOSURE DURING PREGNANCY [None]
  - SPINA BIFIDA [None]
